FAERS Safety Report 16527325 (Version 2)
Quarter: 2019Q3

REPORT INFORMATION
  Report Type: Spontaneous
  Country: US (occurrence: US)
  Receive Date: 20190704
  Receipt Date: 20190827
  Transmission Date: 20191004
  Serious: Yes (Hospitalization)
  Sender: FDA-Public Use
  Company Number: US-TEVA-2019-US-1070409

PATIENT
  Age: 53 Year
  Sex: Female

DRUGS (4)
  1. PANTOPRAZOLE [Suspect]
     Active Substance: PANTOPRAZOLE
     Route: 065
  2. BUDESONIDE/FORMOTEROL FUMARATE DEHYDRATE [Interacting]
     Active Substance: BUDESONIDE\FORMOTEROL FUMARATE
     Dosage: INHALER
     Route: 050
  3. GLECAPREVIR/PIBRENTASVIR [Interacting]
     Active Substance: GLECAPREVIR\PIBRENTASVIR
     Indication: CHRONIC HEPATITIS C
     Dosage: GLECAPREVIR/PIBRENTASVIR (100MG/40MG) THREE TABLETS ONCE DAILY FOR 8 WEEKS
     Route: 065
  4. ALBUTEROL SULFATE. [Concomitant]
     Active Substance: ALBUTEROL SULFATE
     Dosage: INHALER
     Route: 050

REACTIONS (2)
  - Drug interaction [Recovered/Resolved]
  - Drug-induced liver injury [Recovered/Resolved]
